FAERS Safety Report 8796759 (Version 1)
Quarter: 2012Q4

REPORT INFORMATION
  Report Type: 
  Country: US (occurrence: US)
  Receive Date: 20120917
  Receipt Date: 20120917
  Transmission Date: 20130627
  Serious: Yes (Other)
  Sender: FDA-Public Use
  Company Number: US-ASTRAZENECA-2012SE70784

PATIENT
  Age: 60 Year
  Sex: Female

DRUGS (1)
  1. TOPROL XL [Suspect]
     Route: 048

REACTIONS (3)
  - Cataract [Unknown]
  - Blindness unilateral [Unknown]
  - Hypoacusis [Unknown]
